FAERS Safety Report 23439899 (Version 1)
Quarter: 2024Q1

REPORT INFORMATION
  Report Type: Spontaneous
  Country: CN (occurrence: CN)
  Receive Date: 20240124
  Receipt Date: 20240124
  Transmission Date: 20240410
  Serious: Yes (Other)
  Sender: FDA-Public Use
  Company Number: CN-PFIZER INC-PV202400009089

PATIENT
  Age: 1 Year
  Sex: Male

DRUGS (2)
  1. AZITHROMYCIN [Suspect]
     Active Substance: AZITHROMYCIN
     Indication: Mycoplasma infection
     Dosage: 0.1 G, 1X/DAY
     Route: 048
     Dates: start: 20240107, end: 20240108
  2. HERBALS [Concomitant]
     Active Substance: HERBALS
     Indication: Cough
     Dosage: 3 G, 3X/DAY
     Route: 048
     Dates: start: 20240107, end: 20240108

REACTIONS (3)
  - Gastrointestinal disorder [Recovered/Resolved]
  - Infantile vomiting [Recovered/Resolved]
  - Infantile diarrhoea [Recovered/Resolved]

NARRATIVE: CASE EVENT DATE: 20240108
